FAERS Safety Report 10128409 (Version 1)
Quarter: 2014Q2

REPORT INFORMATION
  Report Type: Spontaneous
  Country: US (occurrence: US)
  Receive Date: 20140428
  Receipt Date: 20140428
  Transmission Date: 20141212
  Serious: No
  Sender: FDA-Public Use
  Company Number: US-009507513-1404USA011554

PATIENT
  Sex: Male

DRUGS (8)
  1. PEGINTRON [Suspect]
     Indication: CHRONIC HEPATITIS C
     Dosage: 120 MICROGRAM, QW, STRENGHT 120MCG/0.5ML
     Dates: start: 201402
  2. RIBAPAK [Suspect]
     Dosage: DOUBLE DOSE
     Dates: start: 20140418
  3. SOVALDI [Concomitant]
  4. NORVASC [Concomitant]
  5. CELEXA [Concomitant]
  6. BACTRIM DS [Concomitant]
  7. PROAIR HFA [Concomitant]
  8. VITAMINS (UNSPECIFIED) [Concomitant]

REACTIONS (2)
  - Back pain [Recovering/Resolving]
  - Renal pain [Recovering/Resolving]
